FAERS Safety Report 14709945 (Version 3)
Quarter: 2018Q2

REPORT INFORMATION
  Report Type: Spontaneous
  Country: CH (occurrence: CH)
  Receive Date: 20180403
  Receipt Date: 20180516
  Transmission Date: 20180711
  Serious: No
  Sender: FDA-Public Use
  Company Number: PHHY2018CH051768

PATIENT
  Sex: Female

DRUGS (3)
  1. CO-LOSARTAN SANDOZ [Suspect]
     Active Substance: HYDROCHLOROTHIAZIDE\LOSARTAN POTASSIUM
     Indication: HYPERTENSION
     Dosage: UNK
     Route: 065
     Dates: start: 201802, end: 20180313
  2. LOSARTAN SANDOZ [Suspect]
     Active Substance: LOSARTAN
     Indication: HYPERTENSION
     Dosage: 50 OT, UNK
     Route: 065
     Dates: start: 201712, end: 201802
  3. LOSARTAN SANDOZ [Suspect]
     Active Substance: LOSARTAN
     Dosage: 50 OT, UNK
     Route: 065
     Dates: start: 20180313

REACTIONS (3)
  - Herpes zoster [Not Recovered/Not Resolved]
  - Rash generalised [Not Recovered/Not Resolved]
  - Malaise [Unknown]
